FAERS Safety Report 6547393-7 (Version None)
Quarter: 2010Q1

REPORT INFORMATION
  Report Type: 
  Country: None (occurrence: None)
  Receive Date: 20100122
  Receipt Date: 20100114
  Transmission Date: 20100710
  Serious: Yes (Other)
  Sender: FDA-Public Use
  Company Number: PHHY2010KR02083

PATIENT
  Sex: Female

DRUGS (1)
  1. DIOVAN [Suspect]
     Dosage: 80 MG
     Route: 048

REACTIONS (4)
  - CHEST PAIN [None]
  - HYPERTENSION [None]
  - OROPHARYNGEAL PAIN [None]
  - WEIGHT DECREASED [None]
